FAERS Safety Report 6552820-5 (Version None)
Quarter: 2010Q1

REPORT INFORMATION
  Report Type: 
  Country: None (occurrence: None)
  Receive Date: 20100121
  Receipt Date: 20100105
  Transmission Date: 20100710
  Serious: Yes (Hospitalization, Other)
  Sender: FDA-Public Use
  Company Number: 465847

PATIENT
  Age: 33 Year
  Sex: Male
  Weight: 70 kg

DRUGS (10)
  1. CYTARABINE [Suspect]
     Indication: DRUG USE FOR UNKNOWN INDICATION
     Dosage: 5835MG, Q 12 HOURS, IV
     Route: 042
  2. METHOTREXATE INJECTION [Suspect]
     Indication: DRUG USE FOR UNKNOWN INDICATION
     Dosage: 1945MG, ONCE, IV
     Route: 042
  3. METHOTREXATE INJECTION [Suspect]
  4. CELEXA [Concomitant]
  5. DOCUSATE SODIUM [Concomitant]
  6. MS CONTIN [Concomitant]
  7. OLANZAPINE [Concomitant]
  8. SENOKOT [Concomitant]
  9. FRAGMIN [Concomitant]
  10. MORPHINE [Concomitant]

REACTIONS (10)
  - BLOOD CULTURE POSITIVE [None]
  - BLOOD PRESSURE DECREASED [None]
  - DIARRHOEA [None]
  - ENTEROCOCCAL INFECTION [None]
  - FALL [None]
  - FEBRILE NEUTROPENIA [None]
  - HEART RATE INCREASED [None]
  - HYPERHIDROSIS [None]
  - PNEUMONIA KLEBSIELLA [None]
  - SYNCOPE [None]
